FAERS Safety Report 5890330-9 (Version None)
Quarter: 2008Q3

REPORT INFORMATION
  Report Type: 
  Country: None (occurrence: None)
  Receive Date: 20080918
  Receipt Date: 20080909
  Transmission Date: 20090109
  Serious: Yes (Other)
  Sender: FDA-Public Use
  Company Number: DSA_32404_2008

PATIENT
  Sex: Male

DRUGS (2)
  1. ATIVAN [Suspect]
     Indication: ANXIETY
     Dosage: 0.5 MG PRN, 2-3 MG
     Dates: start: 20050701
  2. ATIVAN [Suspect]
     Indication: ANXIETY
     Dosage: 0.5 MG PRN, 2-3 MG
     Dates: start: 20080101

REACTIONS (8)
  - COMPULSIVE LIP BITING [None]
  - DRUG DEPENDENCE [None]
  - DRUG WITHDRAWAL SYNDROME [None]
  - FLUSHING [None]
  - HEAD INJURY [None]
  - HYPERHIDROSIS [None]
  - PANIC ATTACK [None]
  - VOMITING [None]
